FAERS Safety Report 21956123 (Version 1)
Quarter: 2023Q1

REPORT INFORMATION
  Report Type: Spontaneous
  Country: US (occurrence: US)
  Receive Date: 20230206
  Receipt Date: 20230206
  Transmission Date: 20230417
  Serious: No
  Sender: FDA-Public Use
  Company Number: US-ELI_LILLY_AND_COMPANY-US202301012320

PATIENT
  Sex: Female

DRUGS (1)
  1. HUMALOG [Suspect]
     Active Substance: INSULIN LISPRO
     Indication: Diabetes mellitus
     Dosage: 40 INTERNATIONAL UNIT, DAILY
     Route: 065
     Dates: start: 2015

REACTIONS (2)
  - Diabetic complication [Not Recovered/Not Resolved]
  - Blood glucose abnormal [Not Recovered/Not Resolved]
